FAERS Safety Report 17288296 (Version 2)
Quarter: 2020Q1

REPORT INFORMATION
  Report Type: Report from Study
  Country: DE (occurrence: DE)
  Receive Date: 20200120
  Receipt Date: 20200122
  Transmission Date: 20200409
  Serious: Yes (Hospitalization, Other)
  Sender: FDA-Public Use
  Company Number: DE-AMGEN-DEUCT2020007848

PATIENT
  Age: 26 Year
  Sex: Female

DRUGS (1)
  1. ERENUMAB [Suspect]
     Active Substance: ERENUMAB
     Indication: MIGRAINE
     Dosage: UNK
     Route: 058
     Dates: start: 20191017, end: 20191021

REACTIONS (8)
  - Pyrexia [Recovered/Resolved]
  - Bacteraemia [Unknown]
  - Syncope [Recovered/Resolved]
  - Poisoning [Recovered/Resolved]
  - Abdominal pain [Recovered/Resolved]
  - Gastroenteritis [Recovered/Resolved]
  - Vomiting [Recovered/Resolved]
  - Hyperventilation [Recovered/Resolved]

NARRATIVE: CASE EVENT DATE: 20200106
